FAERS Safety Report 5567575-0 (Version None)
Quarter: 2007Q4

REPORT INFORMATION
  Report Type: 
  Country: None (occurrence: None)
  Receive Date: 20071214
  Receipt Date: 20071203
  Transmission Date: 20080405
  Serious: Yes (Hospitalization)
  Sender: FDA-Public Use
  Company Number: 2007-05460

PATIENT
  Age: 38 Year
  Sex: Female

DRUGS (6)
  1. TRELSTAR DEPOT (WITH CLIP'N'JECT) (WATSON LABORATORIES)(TRIPTORELIN PA [Suspect]
     Indication: ASSISTED FERTILISATION
     Dosage: 3.75 MG 2 ML VIAL, SINGLE, INTRAMUSCULAR
     Route: 030
     Dates: start: 20070701
  2. PUREGON(FOLLITROPIN BETA) [Suspect]
     Indication: ASSISTED FERTILISATION
     Dosage: (CYCLIC), INTRAMUSCULAR
     Route: 030
     Dates: start: 20070701
  3. NORPROLAC ^NOVARTIS^(QUINAGOLIDE HYDROCHLORIDE) [Suspect]
     Indication: NAUSEA
     Dosage: 25 MCG, SINGLE, ORAL
     Route: 048
     Dates: start: 20070701, end: 20070701
  4. YASMINELLE DIARIO() [Suspect]
     Indication: ASSISTED FERTILISATION
     Dosage: 150 MG, DAILY, ORAL
     Route: 048
     Dates: start: 20070701
  5. MENOPUR [Suspect]
     Indication: ASSISTED FERTILISATION
     Dosage: 1 FIXED DOSE
     Dates: start: 20060714
  6. EUTIROX (LEVOTHYROXINE) [Concomitant]

REACTIONS (4)
  - HEPATIC FUNCTION ABNORMAL [None]
  - OVARIAN HYPERSTIMULATION SYNDROME [None]
  - PRURITUS [None]
  - TRANSAMINASES INCREASED [None]
